FAERS Safety Report 13359641 (Version 1)
Quarter: 2017Q1

REPORT INFORMATION
  Report Type: Spontaneous
  Country: JP (occurrence: JP)
  Receive Date: 20170322
  Receipt Date: 20170322
  Transmission Date: 20170429
  Serious: Yes (Other)
  Sender: FDA-Public Use
  Company Number: JP-JNJFOC-20170319160

PATIENT

DRUGS (1)
  1. ZYTIGA [Suspect]
     Active Substance: ABIRATERONE ACETATE
     Indication: PRODUCT USED FOR UNKNOWN INDICATION
     Route: 048

REACTIONS (12)
  - Fatigue [Unknown]
  - Glucose tolerance impaired [Unknown]
  - Oedema [Unknown]
  - Malaise [Unknown]
  - Decreased appetite [Unknown]
  - Hypokalaemia [Unknown]
  - Cardiac failure [Unknown]
  - Hypoaesthesia [Unknown]
  - Hepatic function abnormal [Unknown]
  - Hypertension [Unknown]
  - Diabetes mellitus [Unknown]
  - Hot flush [Unknown]
